FAERS Safety Report 5876208-5 (Version None)
Quarter: 2008Q3

REPORT INFORMATION
  Report Type: 
  Country: None (occurrence: None)
  Receive Date: 20080908
  Receipt Date: 20080826
  Transmission Date: 20090109
  Serious: Yes (Death)
  Sender: FDA-Public Use
  Company Number: US024467

PATIENT
  Sex: Male

DRUGS (1)
  1. FENTORA [Suspect]
     Indication: CANCER PAIN
     Dosage: 600 UG BUCCAL
     Route: 002
     Dates: end: 20060101

REACTIONS (1)
  - MALIGNANT NEOPLASM PROGRESSION [None]
